FAERS Safety Report 8603833-0 (Version None)
Quarter: 2012Q3

REPORT INFORMATION
  Report Type: 
  Country: None (occurrence: None)
  Receive Date: 20120818
  Receipt Date: 20111216
  Transmission Date: 20120928
  Serious: Yes (Hospitalization, Other)
  Sender: FDA-Public Use
  Company Number: PHEH2011US011866

PATIENT
  Sex: Male

DRUGS (5)
  1. CLARITIN [Concomitant]
  2. PROMETHAZINE HYDROCHLORIDE [Concomitant]
  3. ATIVAN [Concomitant]
     Dosage: 100 MG, 2 A DAY
     Route: 065
  4. LORAZEPAM [Concomitant]
  5. GLEEVEC [Suspect]
     Indication: CHRONIC MYELOID LEUKAEMIA
     Dosage: 400 MG, DAILY
     Route: 065
     Dates: start: 20110901

REACTIONS (13)
  - MYALGIA [None]
  - INFLUENZA LIKE ILLNESS [None]
  - HEADACHE [None]
  - MELANOCYTIC NAEVUS [None]
  - CHEST DISCOMFORT [None]
  - MUSCLE TIGHTNESS [None]
  - DYSPNOEA [None]
  - CHRONIC MYELOID LEUKAEMIA [None]
  - NEOPLASM MALIGNANT [None]
  - ANXIETY [None]
  - BACK PAIN [None]
  - FATIGUE [None]
  - NAUSEA [None]
